FAERS Safety Report 17303554 (Version 2)
Quarter: 2020Q1

REPORT INFORMATION
  Report Type: Spontaneous
  Country: FR (occurrence: FR)
  Receive Date: 20200122
  Receipt Date: 20200220
  Transmission Date: 20200409
  Serious: Yes (Other)
  Sender: FDA-Public Use
  Company Number: FR-LUNDBECK-DKLU3010814

PATIENT
  Age: 34 Year
  Sex: Male

DRUGS (3)
  1. URBANYL [Suspect]
     Active Substance: CLOBAZAM
     Dosage: 5 MG / 2 D
     Route: 065
  2. URBANYL [Suspect]
     Active Substance: CLOBAZAM
     Indication: EPILEPSY
     Route: 065
  3. URBANYL [Suspect]
     Active Substance: CLOBAZAM
     Route: 065

REACTIONS (2)
  - Epilepsy [Unknown]
  - Drug ineffective for unapproved indication [Unknown]
